FAERS Safety Report 7328426-7 (Version None)
Quarter: 2011Q1

REPORT INFORMATION
  Report Type: 
  Country: None (occurrence: None)
  Receive Date: 20110224
  Receipt Date: 20110224
  Transmission Date: 20110831
  Serious: Yes (Hospitalization)
  Sender: FDA-Public Use
  Company Number: None

PATIENT
  Age: 60 Year
  Sex: Male
  Weight: 71.8 kg

DRUGS (1)
  1. LISINOPRIL [Suspect]
     Indication: HYPOTENSION
     Dosage: 20 MG AM PO
     Route: 048
     Dates: start: 20100415, end: 20110112

REACTIONS (1)
  - ANGIOEDEMA [None]
